FAERS Safety Report 16532149 (Version 1)
Quarter: 2019Q3

REPORT INFORMATION
  Report Type: Report from Study
  Country: None (occurrence: UY)
  Receive Date: 20190705
  Receipt Date: 20190705
  Transmission Date: 20191004
  Serious: Yes (Hospitalization)
  Sender: FDA-Public Use
  Company Number: UY-ABBVIE-19K-168-2843683-00

PATIENT
  Age: 76 Year
  Sex: Female

DRUGS (1)
  1. HUMIRA [Suspect]
     Active Substance: ADALIMUMAB
     Indication: RHEUMATOID ARTHRITIS
     Route: 058
     Dates: start: 20180807, end: 20181222

REACTIONS (2)
  - Carpal tunnel syndrome [Recovering/Resolving]
  - Gallstone ileus [Recovered/Resolved]

NARRATIVE: CASE EVENT DATE: 201903
